FAERS Safety Report 26147068 (Version 1)
Quarter: 2025Q4

REPORT INFORMATION
  Report Type: Spontaneous
  Country: EU (occurrence: EU)
  Receive Date: 20251211
  Receipt Date: 20251211
  Transmission Date: 20260117
  Serious: Yes (Other)
  Sender: MYLAN
  Company Number: None

PATIENT
  Age: 43 Year
  Sex: Female

DRUGS (12)
  1. REMIFENTANIL [Suspect]
     Active Substance: REMIFENTANIL
     Indication: Anaesthesia
     Dosage: FROM 8AM TO 5PM
     Dates: start: 20251110, end: 20251110
  2. TRANEXAMIC ACID [Suspect]
     Active Substance: TRANEXAMIC ACID
     Indication: Haemorrhage
     Dosage: 2 GRAM, TOTAL, 1G THEN 1G/8H (STARTING AT 9AM)
     Dates: start: 20251110, end: 20251110
  3. PROPOFOL [Suspect]
     Active Substance: PROPOFOL
     Indication: Anaesthesia
     Dosage: 8AM AND 5PM
     Dates: start: 20251110, end: 20251110
  4. CEFAZOLIN [Suspect]
     Active Substance: CEFAZOLIN
     Indication: Prophylaxis
     Dosage: 4 GRAM, TOTAL, 2G AT 8AM THEN 1G AT 12PM AND 4PM
     Dates: start: 20251110, end: 20251110
  5. FIBRINOGEN [Suspect]
     Active Substance: FIBRINOGEN HUMAN
     Indication: Haemorrhage
     Dosage: 3 GRAM, TOTAL, FIBRINOGEN HUMAN
     Dates: start: 20251110, end: 20251110
  6. NOREPINEPHRINE BITARTRATE [Concomitant]
     Active Substance: NOREPINEPHRINE BITARTRATE
     Indication: Blood pressure fluctuation
     Dosage: 0.45 MILLIGRAM, QH, 8AM TO 9AM, THEN FROM 11:40AM TO 1PM, THEN FROM 2PM TO 5:40PM
     Dates: start: 20251110, end: 20251110
  7. Solupred [Concomitant]
     Dosage: UNK
  8. DEXAMETHASONE [Concomitant]
     Active Substance: DEXAMETHASONE
     Dosage: UNK
  9. LEVETIRACETAM [Concomitant]
     Active Substance: LEVETIRACETAM
     Dosage: UNK
  10. MORPHINE [Concomitant]
     Active Substance: MORPHINE
     Dosage: UNK
  11. ATRACURIUM [Concomitant]
     Active Substance: ATRACURIUM
     Dosage: UNK
  12. ACETAMINOPHEN [Concomitant]
     Active Substance: ACETAMINOPHEN
     Dosage: UNK

REACTIONS (1)
  - Anaphylactoid reaction [Recovered/Resolved]

NARRATIVE: CASE EVENT DATE: 20251110
